FAERS Safety Report 4567989-1 (Version None)
Quarter: 2005Q1

REPORT INFORMATION
  Report Type: 
  Country: None (occurrence: None)
  Receive Date: 20050128
  Receipt Date: 20050112
  Transmission Date: 20050727
  Serious: Yes (Death, Hospitalization)
  Sender: FDA-Public Use
  Company Number: DSA_25646_2005

PATIENT
  Age: 75 Year
  Sex: Female

DRUGS (4)
  1. TILDIEM [Suspect]
     Dosage: 120 MG Q DAY PO
     Route: 048
     Dates: start: 20041112, end: 20041116
  2. BISOPROLOL FUMARATE [Suspect]
     Dosage: 5 MG Q DAY PO
     Route: 048
     Dates: start: 20041115, end: 20041116
  3. LENITRAL [Concomitant]
  4. RISORDAN [Concomitant]

REACTIONS (4)
  - ACUTE PULMONARY OEDEMA [None]
  - ATRIOVENTRICULAR BLOCK COMPLETE [None]
  - CARDIAC ARREST [None]
  - VENTRICULAR FIBRILLATION [None]
